FAERS Safety Report 25328085 (Version 1)
Quarter: 2025Q2

REPORT INFORMATION
  Report Type: Spontaneous
  Country: US (occurrence: US)
  Receive Date: 20250518
  Receipt Date: 20250518
  Transmission Date: 20250717
  Serious: No
  Sender: AUROBINDO
  Company Number: US-AUROBINDO-AUR-APL-2024-023968

PATIENT
  Sex: Male

DRUGS (1)
  1. OLOPATADINE HYDROCHLORIDE [Suspect]
     Active Substance: OLOPATADINE HYDROCHLORIDE
     Indication: Hypersensitivity
     Dosage: 1 DROP, ONCE A DAY
     Route: 047

REACTIONS (2)
  - Drug ineffective [Recovering/Resolving]
  - Product packaging issue [Unknown]
